FAERS Safety Report 24909767 (Version 3)
Quarter: 2025Q1

REPORT INFORMATION
  Report Type: Spontaneous
  Country: JP (occurrence: JP)
  Receive Date: 20250131
  Receipt Date: 20250325
  Transmission Date: 20250409
  Serious: Yes (Other)
  Sender: ROCHE
  Company Number: JP-ROCHE-10000194062

PATIENT
  Age: 30 Year
  Sex: Female

DRUGS (5)
  1. XOFLUZA [Suspect]
     Active Substance: BALOXAVIR MARBOXIL
     Indication: Influenza
     Route: 048
     Dates: start: 20250123, end: 20250123
  2. CARBOCYSTEINE [Concomitant]
     Active Substance: CARBOCYSTEINE
     Indication: Influenza
     Route: 048
     Dates: start: 20250123, end: 20250127
  3. COLDRINE [Concomitant]
     Indication: Influenza
     Route: 048
     Dates: start: 20250123, end: 20250127
  4. TRANSAMIN [Concomitant]
     Active Substance: TRANEXAMIC ACID
     Indication: Influenza
     Route: 048
     Dates: start: 20250123, end: 20250127
  5. CALONAL [Concomitant]
     Active Substance: ACETAMINOPHEN
     Indication: Influenza
     Route: 048
     Dates: start: 20250123

REACTIONS (3)
  - Abdominal pain [Recovering/Resolving]
  - Diarrhoea [Unknown]
  - Melaena [Recovering/Resolving]

NARRATIVE: CASE EVENT DATE: 20250123
